FAERS Safety Report 5944213-6 (Version None)
Quarter: 2008Q4

REPORT INFORMATION
  Report Type: 
  Country: None (occurrence: None)
  Receive Date: 20081106
  Receipt Date: 20081031
  Transmission Date: 20090506
  Serious: Yes (Hospitalization, Other)
  Sender: FDA-Public Use
  Company Number: US-MERCK-0708USA01443

PATIENT
  Age: 64 Year
  Sex: Female

DRUGS (4)
  1. FOSAMAX [Suspect]
     Indication: OSTEOPENIA
     Route: 048
     Dates: start: 20010101, end: 20050101
  2. FOSAMAX [Suspect]
     Route: 048
     Dates: start: 20020401
  3. FOSAMAX [Suspect]
     Indication: OSTEOPOROSIS
     Route: 048
     Dates: start: 20010101, end: 20050101
  4. FOSAMAX [Suspect]
     Route: 048
     Dates: start: 20020401

REACTIONS (24)
  - CEREBRAL VENTRICLE DILATATION [None]
  - CONSTIPATION [None]
  - DRUG HYPERSENSITIVITY [None]
  - EXOSTOSIS [None]
  - EYE DISORDER [None]
  - HYPOTHYROIDISM [None]
  - INAPPROPRIATE SCHEDULE OF DRUG ADMINISTRATION [None]
  - JAW DISORDER [None]
  - LUNG NEOPLASM [None]
  - MASTICATION DISORDER [None]
  - NASAL SEPTUM DEVIATION [None]
  - OESOPHAGEAL DISORDER [None]
  - ORAL DISORDER [None]
  - OSTEOMYELITIS [None]
  - OSTEONECROSIS [None]
  - OVERDOSE [None]
  - RESORPTION BONE INCREASED [None]
  - ROTATOR CUFF SYNDROME [None]
  - SPINAL DISORDER [None]
  - TEMPOROMANDIBULAR JOINT SYNDROME [None]
  - THYROID DISORDER [None]
  - TOOTH ABSCESS [None]
  - URINARY TRACT DISORDER [None]
  - WEIGHT DECREASED [None]
